FAERS Safety Report 5140973-5 (Version None)
Quarter: 2006Q4

REPORT INFORMATION
  Report Type: 
  Country: None (occurrence: None)
  Receive Date: 20061027
  Receipt Date: 20061027
  Transmission Date: 20070319
  Serious: Yes (Hospitalization)
  Sender: FDA-Public Use
  Company Number: None

PATIENT
  Sex: Female

DRUGS (1)
  1. FERRLECIT [Suspect]
     Indication: ANAEMIA
     Dosage: 125MG WEEKLY IV BOLUS
     Route: 040
     Dates: start: 20061018, end: 20061018

REACTIONS (3)
  - ABDOMINAL PAIN [None]
  - CHILLS [None]
  - VOMITING [None]
